FAERS Safety Report 9500169 (Version 2)
Quarter: 2013Q3

REPORT INFORMATION
  Report Type: Report from Study
  Country: TH (occurrence: TH)
  Receive Date: 20130905
  Receipt Date: 20130927
  Transmission Date: 20140515
  Serious: Yes (Other)
  Sender: FDA-Public Use
  Company Number: PHHY2013TH096942

PATIENT
  Sex: Male

DRUGS (2)
  1. GLIVEC [Suspect]
     Indication: GASTROINTESTINAL STROMAL TUMOUR
     Dosage: 400 MG, UNK
  2. GLIVEC [Suspect]
     Dosage: 600 MG, UNK

REACTIONS (3)
  - Hepatomegaly [Unknown]
  - Metastases to liver [Not Recovered/Not Resolved]
  - No therapeutic response [Unknown]
